FAERS Safety Report 19665218 (Version 2)
Quarter: 2021Q3

REPORT INFORMATION
  Report Type: Spontaneous
  Country: US (occurrence: US)
  Receive Date: 20210805
  Receipt Date: 20210805
  Transmission Date: 20211014
  Serious: No
  Sender: FDA-Public Use
  Company Number: US-ROCHE-2813657

PATIENT
  Age: 21 Year
  Sex: Male

DRUGS (6)
  1. RENVELA [Concomitant]
     Active Substance: SEVELAMER CARBONATE
  2. GAVRETO [Suspect]
     Active Substance: PRALSETINIB
     Indication: THYROID CANCER
     Dosage: (3 CAPSULES) ONCE DAILY, ON AN EMPTY STOMACH, AT LEAST 1 HOUR, BEFORE OR 2 HOURS AFTER FOOD
     Route: 048
     Dates: start: 20210118
  3. CALCITRIOL. [Concomitant]
     Active Substance: CALCITRIOL
  4. VENTOLIN [Concomitant]
     Active Substance: ALBUTEROL SULFATE
  5. LEVOTHYROXINE. [Concomitant]
     Active Substance: LEVOTHYROXINE
  6. CALCIUM [Concomitant]
     Active Substance: CALCIUM

REACTIONS (6)
  - Blood phosphorus increased [Unknown]
  - Ocular icterus [Unknown]
  - Vision blurred [Unknown]
  - Alopecia [Unknown]
  - Blood calcium decreased [Unknown]
  - Off label use [Unknown]

NARRATIVE: CASE EVENT DATE: 20210219
